FAERS Safety Report 23843108 (Version 1)
Quarter: 2024Q2

REPORT INFORMATION
  Report Type: Spontaneous
  Country: US (occurrence: None)
  Receive Date: 20240509
  Receipt Date: 20240509
  Transmission Date: 20240716
  Serious: Yes (unspecified)
  Sender: FDA-Public Use
  Company Number: None

PATIENT
  Age: 80 Year
  Sex: Male
  Weight: 78.75 kg

DRUGS (2)
  1. XIIDRA [Suspect]
     Active Substance: LIFITEGRAST
     Indication: Dry eye
     Dosage: OTHER QUANTITY : 60 DROP(S);?FREQUENCY : TWICE A DAY;?
     Dates: start: 20240418, end: 20240425
  2. ONE DAY VITAMINS [Concomitant]

REACTIONS (5)
  - Ocular hyperaemia [None]
  - Dizziness [None]
  - Fatigue [None]
  - Dyspnoea [None]
  - Dizziness [None]

NARRATIVE: CASE EVENT DATE: 20240422
